FAERS Safety Report 19231797 (Version 2)
Quarter: 2021Q2

REPORT INFORMATION
  Report Type: Spontaneous
  Country: US (occurrence: US)
  Receive Date: 20210507
  Receipt Date: 20210520
  Transmission Date: 20210717
  Serious: Yes (Hospitalization)
  Sender: FDA-Public Use
  Company Number: US-PFIZER INC-2021461548

PATIENT
  Age: 39 Year
  Sex: Female
  Weight: 104.33 kg

DRUGS (2)
  1. TOZINAMERAN. [Suspect]
     Active Substance: TOZINAMERAN
     Indication: COVID-19 IMMUNISATION
     Dosage: 1ST DOSE, SINGLE
     Dates: start: 20210420, end: 20210420
  2. LYRICA [Suspect]
     Active Substance: PREGABALIN
     Indication: NEUROPATHY PERIPHERAL
     Dosage: 100 MG, 3X/DAY

REACTIONS (8)
  - Hypoaesthesia [Unknown]
  - Muscular weakness [Unknown]
  - Paralysis [Unknown]
  - Urinary incontinence [Unknown]
  - Renal disorder [Unknown]
  - Paraesthesia [Unknown]
  - Limb discomfort [Unknown]
  - Nervousness [Unknown]
